FAERS Safety Report 15136086 (Version 1)
Quarter: 2018Q3

REPORT INFORMATION
  Report Type: Report from Study
  Country: BR (occurrence: BR)
  Receive Date: 20180712
  Receipt Date: 20180712
  Transmission Date: 20181010
  Serious: Yes (Death, Hospitalization)
  Sender: FDA-Public Use
  Company Number: PHHY2018BR043434

PATIENT
  Age: 38 Year
  Sex: Female

DRUGS (1)
  1. SANDOSTATIN LAR DEPOT [Suspect]
     Active Substance: OCTREOTIDE ACETATE
     Indication: ACROMEGALY
     Dosage: 30 MG, QMO
     Route: 030
     Dates: start: 2013, end: 201806

REACTIONS (7)
  - Vomiting [Fatal]
  - Pneumonia [Fatal]
  - Hypertension [Not Recovered/Not Resolved]
  - Meningitis [Fatal]
  - Headache [Fatal]
  - Syncope [Unknown]
  - Pyrexia [Fatal]

NARRATIVE: CASE EVENT DATE: 20180701
